FAERS Safety Report 9871419 (Version 1)
Quarter: 2014Q1

REPORT INFORMATION
  Report Type: Report from Study
  Country: AR (occurrence: AR)
  Receive Date: 20140205
  Receipt Date: 20140205
  Transmission Date: 20141002
  Serious: Yes (Death)
  Sender: FDA-Public Use
  Company Number: AR-US-EMD SERONO, INC.-7267513

PATIENT
  Age: 65 Year
  Sex: Male

DRUGS (1)
  1. REBIF [Suspect]
     Indication: MULTIPLE SCLEROSIS
     Dates: start: 20060225

REACTIONS (1)
  - Cardio-respiratory arrest [Fatal]
